FAERS Safety Report 23225837 (Version 4)
Quarter: 2024Q1

REPORT INFORMATION
  Report Type: Spontaneous
  Country: US (occurrence: US)
  Receive Date: 20231124
  Receipt Date: 20240226
  Transmission Date: 20240410
  Serious: Yes (Life-Threatening, Hospitalization, Disabling)
  Sender: FDA-Public Use
  Company Number: US-SA-SAC20231123000305

PATIENT
  Age: 45 Year
  Sex: Female

DRUGS (3)
  1. DUPIXENT [Suspect]
     Active Substance: DUPILUMAB
     Indication: Asthma
     Dosage: 600 MG, 1X
     Route: 058
     Dates: start: 202309, end: 202309
  2. DUPIXENT [Suspect]
     Active Substance: DUPILUMAB
     Dosage: 300 MG, QW
     Route: 058
     Dates: start: 202310, end: 20231225
  3. FASENRA [Concomitant]
     Active Substance: BENRALIZUMAB
     Dosage: INJECT 1 PEN UNDER THE SKIN AT WEEK 0, 4 AND 8, THEN INJECT 1 PEN EVERY 8 WEEKS

REACTIONS (4)
  - Loss of personal independence in daily activities [Unknown]
  - Arthralgia [Unknown]
  - Asthma [Unknown]
  - Inappropriate schedule of product administration [Unknown]

NARRATIVE: CASE EVENT DATE: 20230101
